FAERS Safety Report 9084274 (Version 1)
Quarter: 2013Q1

REPORT INFORMATION
  Report Type: Spontaneous
  Country: PR (occurrence: PR)
  Receive Date: 20130131
  Receipt Date: 20130131
  Transmission Date: 20140127
  Serious: No
  Sender: FDA-Public Use
  Company Number: PR-ABBOTT-12P-131-1005443-00

PATIENT
  Sex: Female
  Weight: 62.2 kg

DRUGS (10)
  1. HUMIRA [Suspect]
     Indication: RHEUMATOID ARTHRITIS
     Route: 058
     Dates: start: 201205
  2. HUMIRA [Suspect]
     Indication: OSTEOARTHRITIS
  3. PREDNISONE [Concomitant]
     Indication: RHEUMATOID ARTHRITIS
     Dosage: 1/2 TABLET DAILY
     Route: 048
  4. PREDNISONE [Concomitant]
     Indication: OSTEOARTHRITIS
  5. ACCUPRIL [Concomitant]
     Indication: CARDIAC OPERATION
     Route: 048
     Dates: start: 2002
  6. COREG [Concomitant]
     Indication: CARDIAC OPERATION
     Route: 048
     Dates: start: 2002
  7. COUMADIN [Concomitant]
     Indication: CARDIAC OPERATION
     Dosage: 2MGS ON THURSDAY AND 1MG ON THE REST OF THE WEEK
     Route: 048
     Dates: start: 2002
  8. MEDROL [Concomitant]
     Indication: RHEUMATOID ARTHRITIS
     Dosage: 1 TABLET DAILY
     Route: 048
  9. MEDROL [Concomitant]
     Indication: OSTEOARTHRITIS
  10. CLARITIN D [Concomitant]
     Indication: SINUSITIS
     Dosage: DAILY AS REQUIRED
     Route: 048

REACTIONS (5)
  - Venous pressure jugular increased [Recovered/Resolved]
  - Headache [Recovered/Resolved]
  - Headache [Recovered/Resolved]
  - Eye pain [Recovered/Resolved]
  - Ear pain [Recovered/Resolved]
